FAERS Safety Report 6939378-3 (Version None)
Quarter: 2010Q3

REPORT INFORMATION
  Report Type: 
  Country: None (occurrence: None)
  Receive Date: 20100824
  Receipt Date: 20100816
  Transmission Date: 20110219
  Serious: Yes (Hospitalization)
  Sender: FDA-Public Use
  Company Number: JP-AMGEN-KDC432404

PATIENT
  Age: 46 Year
  Sex: Male

DRUGS (7)
  1. VECTIBIX [Suspect]
     Indication: COLORECTAL CANCER
     Route: 041
     Dates: start: 20100617
  2. MINOCYCLINE HCL [Suspect]
     Route: 048
  3. IRINOTECAN HYDROCHLORIDE [Concomitant]
     Indication: COLORECTAL CANCER
     Route: 041
     Dates: start: 20100617
  4. FLUOROURACIL [Concomitant]
     Indication: COLORECTAL CANCER
     Route: 040
     Dates: start: 20100617
  5. FLUOROURACIL [Concomitant]
     Route: 041
     Dates: start: 20100617
  6. CALCIUM LEVOFOLINATE [Concomitant]
     Indication: COLORECTAL CANCER
     Route: 041
     Dates: start: 20100617
  7. BEVACIZUMAB [Concomitant]

REACTIONS (1)
  - GASTROINTESTINAL INFLAMMATION [None]
